FAERS Safety Report 5506161-5 (Version None)
Quarter: 2007Q4

REPORT INFORMATION
  Report Type: 
  Country: None (occurrence: None)
  Receive Date: 20071105
  Receipt Date: 20071102
  Transmission Date: 20080405
  Serious: Yes (Death)
  Sender: FDA-Public Use
  Company Number: PHBS2007CH18309

PATIENT
  Age: 39 Year
  Sex: Female

DRUGS (9)
  1. ISOTRETINOIN [Suspect]
     Dosage: 1 DF, UNK
     Dates: start: 20070201, end: 20070201
  2. DISMENOL N [Suspect]
     Dosage: UNK, PRN
     Dates: start: 20070201, end: 20070201
  3. LODINE [Suspect]
     Dosage: UNK, PRN
     Dates: start: 20070201, end: 20070201
  4. CITALOPRAM HYDROBROMIDE [Concomitant]
     Indication: DEPRESSION
     Dosage: 20 MG/DAY
     Dates: end: 20070328
  5. NOVALGIN [Concomitant]
     Dates: start: 20070201
  6. ACETAMINOPHEN [Concomitant]
     Dates: start: 20070328, end: 20070331
  7. AUGMENTIN '125' [Concomitant]
     Dates: start: 20070328, end: 20070330
  8. TAZOBACTAM [Concomitant]
     Dates: start: 20070330, end: 20070403
  9. VOLTAREN [Suspect]
     Dosage: UNK, PRN
     Dates: start: 20070201, end: 20070201

REACTIONS (28)
  - ABDOMINAL PAIN [None]
  - ACUTE HEPATIC FAILURE [None]
  - ALANINE AMINOTRANSFERASE INCREASED [None]
  - ANURIA [None]
  - ASPARTATE AMINOTRANSFERASE INCREASED [None]
  - BLOOD ALBUMIN DECREASED [None]
  - BLOOD ALKALINE PHOSPHATASE INCREASED [None]
  - BLOOD BILIRUBIN INCREASED [None]
  - C-REACTIVE PROTEIN INCREASED [None]
  - CARDIOPULMONARY FAILURE [None]
  - CHILLS [None]
  - CHOLECYSTITIS ACUTE [None]
  - CHOLESTASIS [None]
  - COAGULOPATHY [None]
  - EPSTEIN-BARR VIRUS ANTIBODY POSITIVE [None]
  - GAMMA-GLUTAMYLTRANSFERASE INCREASED [None]
  - HAEMODYNAMIC INSTABILITY [None]
  - HEPATIC NECROSIS [None]
  - HYPOTONIA [None]
  - INFECTION [None]
  - INTERNATIONAL NORMALISED RATIO INCREASED [None]
  - LOSS OF CONSCIOUSNESS [None]
  - MULTI-ORGAN FAILURE [None]
  - NAUSEA [None]
  - PYREXIA [None]
  - RENAL FAILURE ACUTE [None]
  - TACHYCARDIA [None]
  - VOMITING [None]
